FAERS Safety Report 4892359-6 (Version None)
Quarter: 2006Q1

REPORT INFORMATION
  Report Type: 
  Country: None (occurrence: None)
  Receive Date: 20060126
  Receipt Date: 20060123
  Transmission Date: 20060701
  Serious: Yes (Life-Threatening)
  Sender: FDA-Public Use
  Company Number: ES-GLAXOSMITHKLINE-B0407693A

PATIENT
  Age: 58 Year
  Sex: Female
  Weight: 65 kg

DRUGS (2)
  1. ZYNTABAC [Suspect]
     Dosage: 300MG TWICE PER DAY
     Route: 048
     Dates: start: 20050201, end: 20050228
  2. NICOTINELL TTS [Suspect]
     Route: 062
     Dates: start: 20050201, end: 20050228

REACTIONS (2)
  - AGRANULOCYTOSIS [None]
  - SEPSIS [None]
